FAERS Safety Report 9683079 (Version 1)
Quarter: 2013Q4

REPORT INFORMATION
  Report Type: Spontaneous
  Country: US (occurrence: None)
  Receive Date: 20131111
  Receipt Date: 20131111
  Transmission Date: 20140711
  Serious: Yes (Hospitalization)
  Sender: FDA-Public Use
  Company Number: None

PATIENT
  Age: 15 Year
  Sex: Female
  Weight: 12.3 kg

DRUGS (4)
  1. LONAFARNIB [Suspect]
     Indication: PROGERIA
     Dosage: 75 MG/100MG  QAM/QPM  PO
     Route: 048
     Dates: start: 200911
  2. PRAVASTATIN [Suspect]
     Indication: PROGERIA
     Route: 048
     Dates: start: 200911
  3. VITAMIN D [Concomitant]
  4. ASPIRIN [Concomitant]

REACTIONS (7)
  - Fatigue [None]
  - Dizziness [None]
  - Hyperhidrosis [None]
  - Heart rate increased [None]
  - Heart rate irregular [None]
  - Anaemia [None]
  - Blood potassium decreased [None]
